FAERS Safety Report 8722617 (Version 2)
Quarter: 2014Q1

REPORT INFORMATION
  Report Type: Report from Study
  Country: CA (occurrence: CA)
  Receive Date: 20120814
  Receipt Date: 20140220
  Transmission Date: 20141002
  Serious: Yes (Other)
  Sender: FDA-Public Use
  Company Number: CA-ROCHE-1097284

PATIENT
  Age: 61 Year
  Sex: Female

DRUGS (8)
  1. RITUXIMAB [Suspect]
     Indication: RHEUMATOID ARTHRITIS
     Route: 042
     Dates: start: 20101020
  2. METFORMIN [Concomitant]
     Route: 065
  3. APO-BISOPROLOL [Concomitant]
  4. HYZAAR [Concomitant]
  5. ASPIRIN [Concomitant]
  6. DIPHENHYDRAMINE HCL [Concomitant]
     Indication: PREMEDICATION
     Route: 048
     Dates: start: 20120208, end: 20120208
  7. ACETAMINOPHEN [Concomitant]
     Indication: PREMEDICATION
     Route: 048
     Dates: start: 20120208, end: 20120208
  8. METHYLPREDNISOLONE [Concomitant]
     Indication: PREMEDICATION
     Route: 042
     Dates: start: 20120208, end: 20120208

REACTIONS (1)
  - Uterine cancer [Unknown]
